FAERS Safety Report 13559839 (Version 11)
Quarter: 2017Q4

REPORT INFORMATION
  Report Type: Spontaneous
  Country: TW (occurrence: TW)
  Receive Date: 20170518
  Receipt Date: 20171107
  Transmission Date: 20180320
  Serious: Yes (Hospitalization, Other)
  Sender: FDA-Public Use
  Company Number: TW-PFIZER INC-2016165906

PATIENT
  Age: 62 Year
  Sex: Male
  Weight: 63 kg

DRUGS (31)
  1. SUTENT [Suspect]
     Active Substance: SUNITINIB MALATE
     Dosage: 37.5 MG, CYCLIC (DAILY, TWO WEEKS ON AND ONE WEEK OFF))
     Route: 048
     Dates: start: 20170527, end: 20170630
  2. HYDRALAZINE [Concomitant]
     Active Substance: HYDRALAZINE HYDROCHLORIDE
     Indication: TRANSFUSION
     Dosage: UNK
     Route: 048
     Dates: start: 20170505, end: 20170506
  3. CHLORPHENIRAMINE. [Concomitant]
     Active Substance: CHLORPHENIRAMINE
     Indication: TRANSFUSION
     Dosage: UNK
     Route: 042
     Dates: start: 20170505, end: 20170506
  4. CHLORAMPHENICOL ^S^ EYE DROP 5ML [Concomitant]
     Indication: VITREOUS HAEMORRHAGE
  5. CHLORAMPHENICOL ^S^ EYE DROP 5ML [Concomitant]
     Indication: CATARACT
  6. SUTENT [Suspect]
     Active Substance: SUNITINIB MALATE
     Dosage: 37.5 MG, CYCLIC (37.5 MG DAILY, TWO WEEKS ON AND ONE WEEK OFF)
     Route: 048
     Dates: start: 20170325, end: 20170428
  7. APROVEL [Concomitant]
     Active Substance: IRBESARTAN
     Indication: HYPERTENSION
     Dosage: UNK
     Route: 048
     Dates: start: 20161223
  8. TRAJENTA [Concomitant]
     Active Substance: LINAGLIPTIN
     Indication: DIABETES MELLITUS
     Dosage: UNK
     Route: 048
     Dates: start: 20170306
  9. LASIX [Concomitant]
     Active Substance: FUROSEMIDE
     Indication: TRANSFUSION
     Dosage: UNK
     Route: 042
     Dates: start: 20170505, end: 20170506
  10. SUTENT [Suspect]
     Active Substance: SUNITINIB MALATE
     Dosage: 37.5 MG, CYCLIC (DAILY, TWO WEEKS ON AND ONE WEEK OFF)
     Route: 048
     Dates: start: 20170830, end: 20171004
  11. DOXABEN XL [Concomitant]
     Active Substance: DOXAZOSIN MESYLATE
     Indication: HYPERTENSION
     Dosage: UNK
     Route: 048
     Dates: start: 20161223
  12. NORVASC [Concomitant]
     Active Substance: AMLODIPINE BESYLATE
     Indication: HYPERTENSION
     Dosage: UNK
     Route: 048
     Dates: start: 20161223
  13. SOD CHLORIDE ^YF^ INJ 0.9% 500ML [Concomitant]
     Indication: TRANSFUSION
     Dosage: UNK
     Route: 041
     Dates: start: 20170505, end: 20170506
  14. SUTENT [Suspect]
     Active Substance: SUNITINIB MALATE
     Dosage: 37.5 MG, CYCLIC (37.5 MG DAILY, TWO WEEKS ON AND ONE WEEK OFF)
     Route: 048
     Dates: start: 20170121, end: 20170321
  15. TENORMIN [Concomitant]
     Active Substance: ATENOLOL
     Indication: HYPERTENSION
     Dosage: UNK
     Route: 048
     Dates: start: 20170516
  16. KLUDONE MR [Concomitant]
     Indication: DIABETES MELLITUS
     Dosage: UNK
     Route: 048
     Dates: start: 20170606, end: 20170615
  17. EYLEA [Concomitant]
     Active Substance: AFLIBERCEPT
     Indication: DIABETIC RETINOPATHY
     Dosage: UNK
     Route: 047
     Dates: start: 20170131
  18. CHLORAMPHENICOL ^S^ EYE DROP 5ML [Concomitant]
     Indication: DIABETIC RETINOPATHY
     Dosage: UNK
     Route: 047
     Dates: start: 20170407, end: 20170630
  19. HYDRALAZINE [Concomitant]
     Active Substance: HYDRALAZINE HYDROCHLORIDE
     Indication: HYPERTENSION
     Dosage: UNK, 3X/DAY (TID CC)
     Dates: start: 20170705
  20. SUTENT [Suspect]
     Active Substance: SUNITINIB MALATE
     Indication: RENAL CELL CARCINOMA
     Dosage: 50 MG, CYCLIC (50 MG DAILY, TWO WEEKS ON AND ONE WEEK OFF)
     Route: 048
     Dates: start: 20160304, end: 20161125
  21. SUTENT [Suspect]
     Active Substance: SUNITINIB MALATE
     Dosage: 37.5 MG, CYCLIC (37.5 MG DAILY, TWO WEEKS ON AND ONE WEEK OFF)
     Route: 048
     Dates: start: 20170513, end: 20170516
  22. ADALAT [Concomitant]
     Active Substance: NIFEDIPINE
     Indication: TRANSFUSION
     Dosage: UNK
     Route: 048
     Dates: start: 20170505, end: 20170506
  23. CM ^SINPHAR^ EYE DROPS 0.25% [Concomitant]
     Indication: VISION BLURRED
     Dosage: UNK
     Route: 047
     Dates: start: 20161230
  24. DECADRON [Concomitant]
     Active Substance: DEXAMETHASONE
     Indication: TRANSFUSION
     Dosage: UNK
     Route: 042
     Dates: start: 20170505, end: 20170506
  25. FOXONE [Concomitant]
     Indication: DIABETIC RETINOPATHY
     Dosage: UNK
     Route: 047
     Dates: start: 20170523, end: 20170630
  26. FOXONE [Concomitant]
     Indication: VITREOUS HAEMORRHAGE
  27. SUTENT [Suspect]
     Active Substance: SUNITINIB MALATE
     Dosage: 50 MG, CYCLIC (50 MG DAILY, TWO WEEKS ON AND ONE WEEK OFF)
     Route: 048
     Dates: start: 20161209, end: 20170109
  28. FOXONE [Concomitant]
     Indication: CATARACT
  29. CARVEDILOL. [Concomitant]
     Active Substance: CARVEDILOL
     Indication: HYPERTENSION
     Dosage: UNK
     Route: 048
     Dates: start: 20170606, end: 20170615
  30. EYLEA [Concomitant]
     Active Substance: AFLIBERCEPT
     Indication: VITREOUS HAEMORRHAGE
  31. EYLEA [Concomitant]
     Active Substance: AFLIBERCEPT
     Indication: CATARACT

REACTIONS (40)
  - Anaemia [Not Recovered/Not Resolved]
  - Vitreous haemorrhage [Recovering/Resolving]
  - Mucosal inflammation [Not Recovered/Not Resolved]
  - Urinary casts present [Recovered/Resolved]
  - Mouth haemorrhage [Recovered/Resolved]
  - Blood creatinine increased [Not Recovered/Not Resolved]
  - Erythema [Not Recovered/Not Resolved]
  - Blood alkaline phosphatase increased [Not Recovered/Not Resolved]
  - Alanine aminotransferase increased [Not Recovered/Not Resolved]
  - Platelet count decreased [Not Recovered/Not Resolved]
  - Flatulence [Not Recovered/Not Resolved]
  - Periorbital oedema [Not Recovered/Not Resolved]
  - Epistaxis [Recovered/Resolved]
  - Hypertension [Not Recovered/Not Resolved]
  - Atypical pneumonia [Not Recovered/Not Resolved]
  - Cataract [Not Recovered/Not Resolved]
  - Hypothyroidism [Not Recovered/Not Resolved]
  - Palmar-plantar erythrodysaesthesia syndrome [Recovered/Resolved]
  - Hypoalbuminaemia [Not Recovered/Not Resolved]
  - Diarrhoea [Not Recovered/Not Resolved]
  - Conjunctivitis [Recovered/Resolved]
  - Blood urea increased [Not Recovered/Not Resolved]
  - Haematuria [Not Recovered/Not Resolved]
  - Pyrexia [Unknown]
  - Blood lactate dehydrogenase increased [Not Recovered/Not Resolved]
  - White blood cell count decreased [Not Recovered/Not Resolved]
  - Skin discolouration [Not Recovered/Not Resolved]
  - Oedema peripheral [Not Recovered/Not Resolved]
  - Intentional product misuse [Not Recovered/Not Resolved]
  - Cough [Not Recovered/Not Resolved]
  - C-reactive protein increased [Not Recovered/Not Resolved]
  - Gastrooesophageal reflux disease [Not Recovered/Not Resolved]
  - Diabetic retinopathy [Recovering/Resolving]
  - Oral pain [Not Recovered/Not Resolved]
  - Dermatitis [Not Recovered/Not Resolved]
  - Generalised oedema [Not Recovered/Not Resolved]
  - Acute kidney injury [Not Recovered/Not Resolved]
  - Decreased appetite [Not Recovered/Not Resolved]
  - Proteinuria [Not Recovered/Not Resolved]
  - Neoplasm progression [Not Recovered/Not Resolved]

NARRATIVE: CASE EVENT DATE: 2016
